FAERS Safety Report 5210658-5 (Version None)
Quarter: 2007Q1

REPORT INFORMATION
  Report Type: 
  Country: None (occurrence: None)
  Receive Date: 20070116
  Receipt Date: 20070116
  Transmission Date: 20070707
  Serious: Yes (Hospitalization)
  Sender: FDA-Public Use
  Company Number: None

PATIENT
  Age: 77 Year
  Sex: Male
  Weight: 99.8 kg

DRUGS (3)
  1. LOVENOX [Suspect]
     Indication: MYOCARDIAL INFARCTION
     Dosage: 100 MG SC BID
     Route: 058
     Dates: start: 20061106, end: 20061108
  2. ASPIRIN [Suspect]
     Dosage: 81 MG DAILY
     Dates: start: 20061026, end: 20061108
  3. PLAVIX [Suspect]
     Dosage: 75 MG DAILY
     Dates: start: 20061026, end: 20061108

REACTIONS (1)
  - RETROPERITONEAL HAEMORRHAGE [None]
